FAERS Safety Report 24966417 (Version 2)
Quarter: 2025Q1

REPORT INFORMATION
  Report Type: Spontaneous
  Country: JP (occurrence: JP)
  Receive Date: 20250213
  Receipt Date: 20250306
  Transmission Date: 20250408
  Serious: Yes (Death, Other)
  Sender: OTSUKA
  Company Number: JP-OTSUKA-2025_003528

PATIENT
  Age: 7 Month
  Sex: Female

DRUGS (11)
  1. BUSULFAN [Suspect]
     Active Substance: BUSULFAN
     Indication: Stem cell transplant
     Route: 065
  2. BUSULFAN [Suspect]
     Active Substance: BUSULFAN
     Indication: Premedication
  3. GANCICLOVIR [Suspect]
     Active Substance: GANCICLOVIR
     Indication: Cytomegalovirus infection
     Route: 042
  4. GANCICLOVIR [Suspect]
     Active Substance: GANCICLOVIR
     Route: 042
  5. FOSCARNET SODIUM [Suspect]
     Active Substance: FOSCARNET SODIUM
     Indication: Cytomegalovirus infection
     Route: 065
  6. FOSCARNET SODIUM [Suspect]
     Active Substance: FOSCARNET SODIUM
     Indication: Antiviral prophylaxis
     Route: 065
  7. FOSCARNET SODIUM [Suspect]
     Active Substance: FOSCARNET SODIUM
     Route: 065
  8. FLUDARABINE PHOSPHATE [Suspect]
     Active Substance: FLUDARABINE PHOSPHATE
     Indication: Stem cell transplant
     Route: 065
  9. FLUDARABINE PHOSPHATE [Suspect]
     Active Substance: FLUDARABINE PHOSPHATE
     Indication: Premedication
  10. LEFLUNOMIDE [Suspect]
     Active Substance: LEFLUNOMIDE
     Indication: Cytomegalovirus viraemia
     Route: 065
  11. LETERMOVIR [Suspect]
     Active Substance: LETERMOVIR
     Indication: Cytomegalovirus viraemia
     Route: 065

REACTIONS (3)
  - Pulmonary haemorrhage [Fatal]
  - Idiopathic pneumonia syndrome [Unknown]
  - Pulmonary toxicity [Unknown]
